FAERS Safety Report 14598571 (Version 1)
Quarter: 2018Q1

REPORT INFORMATION
  Report Type: Spontaneous
  Country: US (occurrence: US)
  Receive Date: 20180305
  Receipt Date: 20180305
  Transmission Date: 20180509
  Serious: Yes (Hospitalization, Other)
  Sender: FDA-Public Use
  Company Number: US-IMPAX LABORATORIES, INC-2018-IPXL-00607

PATIENT
  Age: 18 Year
  Sex: Female

DRUGS (2)
  1. DEXTROSE 5% [Suspect]
     Active Substance: DEXTROSE
     Indication: HYPERNATRAEMIA
     Dosage: UNK
     Route: 042
  2. DESMOPRESSIN ACETATE IR [Suspect]
     Active Substance: DESMOPRESSIN ACETATE
     Indication: HYPERNATRAEMIA
     Dosage: UNK
     Route: 065

REACTIONS (1)
  - Osmotic demyelination syndrome [Recovering/Resolving]
